FAERS Safety Report 7434218-0 (Version None)
Quarter: 2011Q2

REPORT INFORMATION
  Report Type: 
  Country: None (occurrence: None)
  Receive Date: 20110425
  Receipt Date: 20110420
  Transmission Date: 20111010
  Serious: No
  Sender: FDA-Public Use
  Company Number: US-PFIZER INC-2011086860

PATIENT
  Sex: Female
  Weight: 45.351 kg

DRUGS (10)
  1. CHANTIX [Suspect]
     Indication: SMOKING CESSATION THERAPY
     Dosage: 01 MG, 2X/DAY
     Route: 048
     Dates: start: 20110412
  2. CHANTIX [Suspect]
     Dosage: 0.5 MG, 1X/DAY
  3. PRAVASTATIN [Concomitant]
     Dosage: UNK
  4. CITALOPRAM [Concomitant]
     Dosage: UNK
  5. AVAPRO [Concomitant]
     Dosage: UNK
  6. ISOSORBIDE [Concomitant]
     Dosage: UNK
  7. ZETIA [Concomitant]
     Dosage: UNK
  8. CARVEDILOL [Concomitant]
     Dosage: UNK
  9. ACETYLSALICYLIC ACID [Concomitant]
     Dosage: UNK, DAILY
  10. HYDRALAZINE [Concomitant]
     Dosage: UNK

REACTIONS (2)
  - LOCAL SWELLING [None]
  - SWELLING FACE [None]
